FAERS Safety Report 23644692 (Version 1)
Quarter: 2024Q1

REPORT INFORMATION
  Report Type: Spontaneous
  Country: US (occurrence: None)
  Receive Date: 20240318
  Receipt Date: 20240318
  Transmission Date: 20240410
  Serious: Yes (Death)
  Sender: FDA-Public Use
  Company Number: None

PATIENT
  Age: 88 Year
  Sex: Male

DRUGS (1)
  1. THALOMID [Suspect]
     Active Substance: THALIDOMIDE
     Indication: Gastrointestinal vascular malformation haemorrhagic
     Dosage: FREQUENCY : DAILY;?
     Route: 048
     Dates: start: 20231229, end: 20240112

REACTIONS (2)
  - Disease progression [None]
  - Gastrointestinal vascular malformation haemorrhagic [None]

NARRATIVE: CASE EVENT DATE: 20240221
